FAERS Safety Report 6198092-5 (Version None)
Quarter: 2009Q2

REPORT INFORMATION
  Report Type: 
  Country: None (occurrence: None)
  Receive Date: 20090521
  Receipt Date: 20090511
  Transmission Date: 20091009
  Serious: Yes (Other)
  Sender: FDA-Public Use
  Company Number: GB-WYE-H09347909

PATIENT
  Age: 36 Year
  Sex: Male

DRUGS (2)
  1. IBUPROFEN TABLETS [Suspect]
     Indication: TOOTHACHE
     Dosage: UNKNOWN
     Route: 048
  2. LITHIUM CARBONATE [Interacting]
     Indication: BIPOLAR DISORDER
     Dosage: ^800 MG AT NIGHT FOR DURATION OF AT LEAST 8 YEARS^
     Route: 048

REACTIONS (5)
  - DRUG INTERACTION [None]
  - DRUG LEVEL ABOVE THERAPEUTIC [None]
  - POLYDIPSIA [None]
  - POLYURIA [None]
  - TREMOR [None]
